FAERS Safety Report 6213905-6 (Version None)
Quarter: 2009Q2

REPORT INFORMATION
  Report Type: 
  Country: None (occurrence: None)
  Receive Date: 20090602
  Receipt Date: 20090522
  Transmission Date: 20091009
  Serious: Yes (Death)
  Sender: FDA-Public Use
  Company Number: SPV1-2009-01056

PATIENT
  Age: 79 Year
  Sex: Female

DRUGS (1)
  1. FOSRENOL [Suspect]
     Dosage: 1000 MG, 1 TABLET EACH MEAL AND SNACK, ORAL
     Route: 048

REACTIONS (2)
  - DISEASE COMPLICATION [None]
  - RENAL FAILURE CHRONIC [None]
